FAERS Safety Report 5197159-8 (Version None)
Quarter: 2007Q1

REPORT INFORMATION
  Report Type: 
  Country: None (occurrence: None)
  Receive Date: 20070103
  Receipt Date: 20061229
  Transmission Date: 20070707
  Serious: Yes (Hospitalization)
  Sender: FDA-Public Use
  Company Number: JP-JPN-A200605322

PATIENT
  Sex: Male
  Weight: 51 kg

DRUGS (6)
  1. PAXIL [Suspect]
     Indication: DEPRESSION
     Dosage: 10MG PER DAY
     Route: 048
     Dates: start: 20061027, end: 20061109
  2. LANDSEN [Concomitant]
     Indication: DEPRESSION
     Dosage: 1.5MG PER DAY
     Route: 048
     Dates: start: 20060203
  3. DOGMATYL [Concomitant]
     Indication: DEPRESSION
     Dosage: 150MG PER DAY
     Route: 048
     Dates: start: 20060623
  4. ALINAMIN-F [Concomitant]
     Indication: VITAMIN B1 DEFICIENCY
     Dosage: 75MG PER DAY
     Route: 048
     Dates: start: 20051013
  5. GLYCYRON [Concomitant]
     Indication: LIVER DISORDER
     Route: 048
     Dates: start: 20051013
  6. NITRAZEPAM [Concomitant]
     Indication: INSOMNIA
     Dosage: 10MG PER DAY
     Route: 048
     Dates: start: 20051013, end: 20061213

REACTIONS (6)
  - DEPRESSION [None]
  - EUPHORIC MOOD [None]
  - IMPULSIVE BEHAVIOUR [None]
  - IRRITABILITY [None]
  - MOOD ALTERED [None]
  - THEFT [None]
